FAERS Safety Report 4771602-8 (Version None)
Quarter: 2005Q3

REPORT INFORMATION
  Report Type: 
  Country: None (occurrence: None)
  Receive Date: 20050913
  Receipt Date: 20050913
  Transmission Date: 20060218
  Serious: Yes (Hospitalization)
  Sender: FDA-Public Use
  Company Number: None

PATIENT
  Age: 56 Year
  Sex: Male
  Weight: 82 kg

DRUGS (3)
  1. TEMODAR [Suspect]
     Indication: GLIOBLASTOMA MULTIFORME
     Dosage: SEE IMAGE
     Route: 048
     Dates: start: 20050801, end: 20050907
  2. RADIATION [Suspect]
     Dosage: SEE IMAGE
     Dates: start: 20050801
  3. IRINOTECAN HCL [Suspect]
     Dosage: SEE IMAGE
     Dates: start: 20050801

REACTIONS (4)
  - DRUG TOXICITY [None]
  - LEUKOPENIA [None]
  - PYREXIA [None]
  - THROMBOCYTOPENIA [None]
